FAERS Safety Report 9534905 (Version 1)
Quarter: 2013Q3

REPORT INFORMATION
  Report Type: Spontaneous
  Country: US (occurrence: US)
  Receive Date: 20130918
  Receipt Date: 20130918
  Transmission Date: 20140515
  Serious: Yes (Other)
  Sender: FDA-Public Use
  Company Number: US-ROXANE LABORATORIES, INC.-2013-RO-01547RO

PATIENT
  Sex: Female

DRUGS (5)
  1. DEXAMETHASONE [Suspect]
     Indication: MIGRAINE
     Route: 048
  2. PROZAC [Concomitant]
     Indication: DEPRESSION
  3. PHENERGAN [Concomitant]
     Indication: MIGRAINE
  4. CAMBIA [Concomitant]
     Indication: MIGRAINE
  5. STRIX [Concomitant]
     Indication: MIGRAINE

REACTIONS (1)
  - Acute psychosis [Not Recovered/Not Resolved]
